FAERS Safety Report 7716252-6 (Version None)
Quarter: 2011Q3

REPORT INFORMATION
  Report Type: 
  Country: None (occurrence: None)
  Receive Date: 20110812
  Receipt Date: 20110418
  Transmission Date: 20111222
  Serious: Yes (Life-Threatening, Hospitalization, Disabling)
  Sender: FDA-Public Use
  Company Number: 2011SP017505

PATIENT
  Age: 43 Year
  Sex: Female

DRUGS (4)
  1. BENZODIAZEPINE [Concomitant]
  2. REMERON [Suspect]
     Indication: BIPOLAR DISORDER
     Dosage: 45 MG;QD;PO
     Route: 048
  3. RISPERDAL [Concomitant]
  4. LAMICTAL [Concomitant]

REACTIONS (2)
  - SUICIDAL IDEATION [None]
  - DRUG INEFFECTIVE FOR UNAPPROVED INDICATION [None]
